FAERS Safety Report 4372024-4 (Version None)
Quarter: 2004Q2

REPORT INFORMATION
  Report Type: 
  Country: None (occurrence: None)
  Receive Date: 20040602
  Receipt Date: 20040602
  Transmission Date: 20050107
  Serious: Yes (Hospitalization)
  Sender: FDA-Public Use
  Company Number: None

PATIENT
  Age: 39 Year
  Sex: Male
  Weight: 77.1115 kg

DRUGS (2)
  1. TEMAZEPAM [Suspect]
     Dosage: 1 NIGHT ORAL,
     Route: 048
  2. ALLUNA SLEEP SMITHKLINE BEECHAM [Suspect]
     Dosage: 2 NIGHT ORAL
     Route: 048

REACTIONS (2)
  - DRUG INTERACTION [None]
  - PANIC ATTACK [None]
